FAERS Safety Report 11431017 (Version 1)
Quarter: 2015Q3

REPORT INFORMATION
  Report Type: Spontaneous
  Country: US (occurrence: US)
  Receive Date: 20150828
  Receipt Date: 20150828
  Transmission Date: 20151125
  Serious: No
  Sender: FDA-Public Use
  Company Number: PHEH2015US016172

PATIENT
  Sex: Female

DRUGS (3)
  1. PEPCID AC [Concomitant]
     Active Substance: FAMOTIDINE
     Indication: MALAISE
     Route: 065
  2. GLEEVEC [Suspect]
     Active Substance: IMATINIB MESYLATE
     Indication: CHRONIC MYELOID LEUKAEMIA
     Dosage: 200 MG, QD
     Route: 065
     Dates: start: 200805
  3. TRAMADOL. [Concomitant]
     Active Substance: TRAMADOL
     Indication: MALAISE
     Dosage: 15 MG, BID
     Route: 065

REACTIONS (3)
  - Depression [Recovered/Resolved]
  - Blood test abnormal [Unknown]
  - Bone pain [Recovered/Resolved]
